FAERS Safety Report 6570999-6 (Version None)
Quarter: 2010Q1

REPORT INFORMATION
  Report Type: 
  Country: None (occurrence: None)
  Receive Date: 20100203
  Receipt Date: 20100203
  Transmission Date: 20100710
  Serious: Yes (Life-Threatening, Hospitalization)
  Sender: FDA-Public Use
  Company Number: None

PATIENT
  Age: 75 Year
  Sex: Male
  Weight: 90 kg

DRUGS (3)
  1. FONDAPARINUX SODIUM [Suspect]
     Indication: CORONARY ARTERY STENOSIS
     Dosage: 7.5 MG DAILY SQ
     Route: 058
     Dates: start: 20091222, end: 20100104
  2. FONDAPARINUX SODIUM [Suspect]
     Indication: MYOCARDIAL INFARCTION
     Dosage: 7.5 MG DAILY SQ
     Route: 058
     Dates: start: 20091222, end: 20100104
  3. FONDAPARINUX SODIUM [Suspect]
     Indication: THROMBOSIS
     Dosage: 7.5 MG DAILY SQ
     Route: 058
     Dates: start: 20091222, end: 20100104

REACTIONS (11)
  - ACUTE RESPIRATORY DISTRESS SYNDROME [None]
  - ANTICOAGULATION DRUG LEVEL ABOVE THERAPEUTIC [None]
  - BLOOD CREATININE INCREASED [None]
  - CLOSTRIDIAL INFECTION [None]
  - CREATININE RENAL CLEARANCE DECREASED [None]
  - DEVICE RELATED INFECTION [None]
  - PNEUMONIA [None]
  - RENAL IMPAIRMENT [None]
  - RESPIRATORY FAILURE [None]
  - SEPTIC SHOCK [None]
  - URINE OUTPUT DECREASED [None]
